FAERS Safety Report 19166466 (Version 1)
Quarter: 2021Q2

REPORT INFORMATION
  Report Type: Spontaneous
  Country: US (occurrence: US)
  Receive Date: 20210421
  Receipt Date: 20210421
  Transmission Date: 20210717
  Serious: No
  Sender: FDA-Public Use
  Company Number: US-SUNOVION-2021SUN001379

PATIENT
  Sex: Female

DRUGS (8)
  1. LATUDA [Suspect]
     Active Substance: LURASIDONE HYDROCHLORIDE
     Indication: BIPOLAR II DISORDER
     Dosage: 20 MG
     Route: 048
  2. RISPERDAL [Suspect]
     Active Substance: RISPERIDONE
     Dosage: 0.5 MG
  3. TOPIRAMATE. [Concomitant]
     Active Substance: TOPIRAMATE
     Dosage: 100 MG
  4. DEXILANT [Concomitant]
     Active Substance: DEXLANSOPRAZOLE
     Dosage: 60 UNK
  5. RISPERDAL [Suspect]
     Active Substance: RISPERIDONE
     Dosage: 2 MG
  6. LAMOTRIGINE. [Concomitant]
     Active Substance: LAMOTRIGINE
     Dosage: 100 MG
  7. RISPERDAL [Suspect]
     Active Substance: RISPERIDONE
     Dosage: 1 MG
  8. SERTRALINE [Concomitant]
     Active Substance: SERTRALINE HYDROCHLORIDE
     Dosage: 25 MG

REACTIONS (6)
  - Hypomania [Unknown]
  - Off label use [Unknown]
  - Mania [Unknown]
  - Insomnia [Unknown]
  - Somnolence [Unknown]
  - Depression [Unknown]
